FAERS Safety Report 25110927 (Version 1)
Quarter: 2025Q1

REPORT INFORMATION
  Report Type: Spontaneous
  Country: US (occurrence: US)
  Receive Date: 20250324
  Receipt Date: 20250324
  Transmission Date: 20250409
  Serious: Yes (Other)
  Sender: SANDOZ
  Company Number: US-SANDOZ-SDZ2023US055325

PATIENT
  Age: 41 Year
  Sex: Female

DRUGS (5)
  1. LABETALOL [Suspect]
     Active Substance: LABETALOL
     Indication: Hypertension
     Dosage: 400 MG, BID
     Route: 065
  2. LABETALOL [Suspect]
     Active Substance: LABETALOL
     Dosage: 600 MG, Q8H
     Route: 065
  3. NIFEDIPINE [Suspect]
     Active Substance: NIFEDIPINE
     Indication: Hypertension
     Dosage: 30 MG, QD
     Route: 065
  4. NIFEDIPINE [Suspect]
     Active Substance: NIFEDIPINE
     Dosage: 30 MG, Q12H
     Route: 065
  5. INSULIN NOS [Concomitant]
     Active Substance: INSULIN NOS
     Indication: Type 2 diabetes mellitus
     Dosage: 220 UNITS, QD
     Route: 065

REACTIONS (3)
  - Caesarean section [Unknown]
  - Drug ineffective [Unknown]
  - Exposure during pregnancy [Unknown]
